FAERS Safety Report 5818736-4 (Version None)
Quarter: 2008Q3

REPORT INFORMATION
  Report Type: 
  Country: None (occurrence: None)
  Receive Date: 20080717
  Receipt Date: 20080717
  Transmission Date: 20090109
  Serious: No
  Sender: FDA-Public Use
  Company Number: None

PATIENT
  Age: 76 Year
  Sex: Male
  Weight: 65.77 kg

DRUGS (1)
  1. DOXYCYCLINE HCL [Suspect]
     Indication: INFECTION
     Dosage: 100 MG BID PO
     Route: 048
     Dates: start: 20080612, end: 20080628

REACTIONS (4)
  - DRUG INTOLERANCE [None]
  - PERITONITIS [None]
  - REFUSAL OF TREATMENT BY PATIENT [None]
  - SMALL INTESTINAL OBSTRUCTION [None]
